FAERS Safety Report 13908760 (Version 2)
Quarter: 2017Q3

REPORT INFORMATION
  Report Type: Spontaneous
  Country: US (occurrence: US)
  Receive Date: 20170827
  Receipt Date: 20170829
  Transmission Date: 20171127
  Serious: Yes (Other)
  Sender: FDA-Public Use
  Company Number: US-ASTRAZENECA-2017SE86008

PATIENT
  Sex: Male

DRUGS (2)
  1. XIGDUO XR [Suspect]
     Active Substance: DAPAGLIFLOZIN PROPANEDIOL\METFORMIN HYDROCHLORIDE
     Indication: DIABETES MELLITUS
     Dosage: 5/1000 2 TABLETS DAILY
     Route: 048
  2. MUSINEX D MAX STRENGTH [Concomitant]
     Dosage: 1 DF, EVERY 12 HOURS
     Route: 048

REACTIONS (5)
  - Sleep apnoea syndrome [Unknown]
  - Off label use [Unknown]
  - Hypercholesterolaemia [Unknown]
  - Hypertension [Unknown]
  - Diabetic ketoacidosis [Unknown]
